FAERS Safety Report 9648452 (Version 2)
Quarter: 2013Q4

REPORT INFORMATION
  Report Type: Spontaneous
  Country: JP (occurrence: JP)
  Receive Date: 20131028
  Receipt Date: 20131028
  Transmission Date: 20140711
  Serious: Yes (Hospitalization)
  Sender: FDA-Public Use
  Company Number: JP-PFIZER INC-2013286778

PATIENT
  Age: 45 Year
  Sex: Female

DRUGS (1)
  1. SOLANAX [Suspect]
     Indication: AUTONOMIC NERVOUS SYSTEM IMBALANCE
     Dosage: 2.4 MG DAILY
     Route: 048
     Dates: start: 201304

REACTIONS (1)
  - Fracture [Unknown]
